FAERS Safety Report 17691717 (Version 1)
Quarter: 2020Q2

REPORT INFORMATION
  Report Type: Spontaneous
  Country: US (occurrence: US)
  Receive Date: 20200422
  Receipt Date: 20200422
  Transmission Date: 20200714
  Serious: Yes (Hospitalization)
  Sender: FDA-Public Use
  Company Number: US-TEVA-2020-US-1224621

PATIENT
  Age: 46 Year
  Sex: Male

DRUGS (2)
  1. PROPOFOL. [Suspect]
     Active Substance: PROPOFOL
     Indication: ANAESTHESIA
     Route: 065
  2. NOREPINEPHRINE. [Suspect]
     Active Substance: NOREPINEPHRINE
     Indication: HYPOTENSION
     Route: 065

REACTIONS (6)
  - Cardiac arrest [Unknown]
  - Ventricular arrhythmia [Unknown]
  - Unmasking of previously unidentified disease [Unknown]
  - Brugada syndrome [Unknown]
  - Hypotension [Unknown]
  - Syncope [Unknown]
